FAERS Safety Report 25803006 (Version 1)
Quarter: 2025Q3

REPORT INFORMATION
  Report Type: Report from Study
  Country: US (occurrence: US)
  Receive Date: 20250915
  Receipt Date: 20250915
  Transmission Date: 20251020
  Serious: Yes (Hospitalization)
  Sender: ROCHE
  Company Number: US-ROCHE-10000384099

PATIENT

DRUGS (4)
  1. RITUXIMAB [Suspect]
     Active Substance: RITUXIMAB
     Indication: Multiple sclerosis
     Route: 065
  2. OCRELIZUMAB [Suspect]
     Active Substance: OCRELIZUMAB
     Indication: Multiple sclerosis
     Route: 065
  3. OFATUMUMAB [Suspect]
     Active Substance: OFATUMUMAB
     Indication: Multiple sclerosis
     Route: 065
  4. UBLITUXIMAB [Suspect]
     Active Substance: UBLITUXIMAB
     Indication: Multiple sclerosis
     Route: 065

REACTIONS (12)
  - Sinusitis [Unknown]
  - Otitis media [Unknown]
  - Pneumonia [Unknown]
  - Cellulitis [Unknown]
  - Rhinovirus infection [Unknown]
  - Enterovirus infection [Unknown]
  - Haemophilus bacteraemia [Unknown]
  - Mastoiditis [Unknown]
  - Subperiosteal abscess [Unknown]
  - COVID-19 pneumonia [Unknown]
  - Off label use [Unknown]
  - Hypogammaglobulinaemia [Unknown]
